FAERS Safety Report 19126774 (Version 1)
Quarter: 2021Q2

REPORT INFORMATION
  Report Type: Other
  Country: AU (occurrence: AU)
  Receive Date: 20210412
  Receipt Date: 20210412
  Transmission Date: 20210717
  Serious: Yes (Death)
  Sender: FDA-Public Use
  Company Number: AU-B.BRAUN MEDICAL INC.-2109230

PATIENT
  Age: 40 Year
  Sex: Female

DRUGS (1)
  1. MAGNESIUM SULFATE IN DEXTROSE [Suspect]
     Active Substance: MAGNESIUM SULFATE
     Route: 042

REACTIONS (1)
  - Drug ineffective [Fatal]
